FAERS Safety Report 14070085 (Version 5)
Quarter: 2018Q1

REPORT INFORMATION
  Report Type: Spontaneous
  Country: AT (occurrence: AT)
  Receive Date: 20171010
  Receipt Date: 20180313
  Transmission Date: 20180508
  Serious: Yes (Hospitalization)
  Sender: FDA-Public Use
  Company Number: AT-ALLERGAN-1756954US

PATIENT
  Age: 58 Year
  Sex: Male

DRUGS (12)
  1. LYRICA [Suspect]
     Active Substance: PREGABALIN
     Indication: PRODUCT USED FOR UNKNOWN INDICATION
     Dosage: 750 MG, QD
     Route: 048
     Dates: start: 20150319, end: 20160101
  2. ESCITALOPRAM OXALATE - BP [Suspect]
     Active Substance: ESCITALOPRAM OXALATE
     Indication: PRODUCT USED FOR UNKNOWN INDICATION
     Dosage: 15 MG, QD
     Route: 048
     Dates: start: 20150324, end: 20160101
  3. LYRICA [Suspect]
     Active Substance: PREGABALIN
     Dosage: 150 MG, QD
     Route: 048
     Dates: start: 20160211, end: 20160214
  4. RISPERDAL [Suspect]
     Active Substance: RISPERIDONE
     Dosage: 2 MG, UNK
     Route: 048
     Dates: start: 20140128, end: 20160204
  5. LYRICA [Suspect]
     Active Substance: PREGABALIN
     Dosage: 450 MG, QD
     Route: 048
     Dates: start: 20160101, end: 20160207
  6. PANTOPRAZOLE [Concomitant]
     Active Substance: PANTOPRAZOLE
     Indication: PRODUCT USED FOR UNKNOWN INDICATION
     Dosage: UNK
     Dates: start: 20140501
  7. ESCITALOPRAM OXALATE - BP [Suspect]
     Active Substance: ESCITALOPRAM OXALATE
     Dosage: 10 MG, QD
     Route: 048
     Dates: start: 20160101
  8. TOPAMAX [Suspect]
     Active Substance: TOPIRAMATE
     Dosage: 25 MG, QD
     Route: 048
     Dates: start: 20160101, end: 20160216
  9. TOPAMAX [Suspect]
     Active Substance: TOPIRAMATE
     Indication: PRODUCT USED FOR UNKNOWN INDICATION
     Dosage: 100 MG, QD
     Route: 048
     Dates: start: 20150309, end: 20160101
  10. RISPERDAL [Suspect]
     Active Substance: RISPERIDONE
     Indication: PRODUCT USED FOR UNKNOWN INDICATION
     Dosage: 2 MG, QD
     Route: 065
     Dates: start: 20141028, end: 20160204
  11. LYRICA [Suspect]
     Active Substance: PREGABALIN
     Dosage: 375 MG, QD
     Route: 048
     Dates: start: 20160208, end: 20160208
  12. LYRICA [Suspect]
     Active Substance: PREGABALIN
     Dosage: 300 MG, QD
     Route: 048
     Dates: start: 20160209, end: 20160210

REACTIONS (2)
  - Sedation [Unknown]
  - Tremor [Recovering/Resolving]

NARRATIVE: CASE EVENT DATE: 20150401
